FAERS Safety Report 15436049 (Version 1)
Quarter: 2018Q3

REPORT INFORMATION
  Report Type: Spontaneous
  Country: US (occurrence: US)
  Receive Date: 20180927
  Receipt Date: 20180927
  Transmission Date: 20181010
  Serious: No
  Sender: FDA-Public Use
  Company Number: US-PFIZER INC-2018385213

PATIENT
  Age: 29 Year
  Sex: Female

DRUGS (3)
  1. VITAMIN D [Concomitant]
     Active Substance: CHOLECALCIFEROL
     Dosage: UNK (VIT D 50000)
  2. CLOXAN [CLOXACILLIN SODIUM] [Concomitant]
     Dosage: UNK
  3. XELJANZ [Suspect]
     Active Substance: TOFACITINIB CITRATE
     Dosage: UNK

REACTIONS (4)
  - Pain [Unknown]
  - Hypoaesthesia [Unknown]
  - Influenza [Unknown]
  - Swelling [Unknown]
